FAERS Safety Report 17155485 (Version 1)
Quarter: 2019Q4

REPORT INFORMATION
  Report Type: Spontaneous
  Country: FR (occurrence: FR)
  Receive Date: 20191215
  Receipt Date: 20191215
  Transmission Date: 20200122
  Serious: Yes (Hospitalization)
  Sender: FDA-Public Use
  Company Number: FR-UCBSA-2019052761

PATIENT
  Age: 50 Year
  Sex: Female

DRUGS (9)
  1. GUTRON [Concomitant]
     Active Substance: MIDODRINE
     Indication: PRODUCT USED FOR UNKNOWN INDICATION
     Route: 048
  2. ATROPINE. [Concomitant]
     Active Substance: ATROPINE
     Indication: PRODUCT USED FOR UNKNOWN INDICATION
     Route: 060
     Dates: start: 20190828
  3. SINEMET LP [Concomitant]
     Active Substance: CARBIDOPA\LEVODOPA
     Indication: PARKINSONISM
     Route: 048
  4. LAROXYL [Concomitant]
     Active Substance: AMITRIPTYLINE HYDROCHLORIDE
     Indication: MAJOR DEPRESSION
     Route: 048
  5. VALIUM [Suspect]
     Active Substance: DIAZEPAM
     Indication: MAJOR DEPRESSION
     Dosage: 40 DROPS DAILY (DROP (1/2 MILLILITER)
     Route: 048
     Dates: start: 20191023, end: 20191030
  6. OLANZAPINE. [Suspect]
     Active Substance: OLANZAPINE
     Indication: MAJOR DEPRESSION
     Dosage: 5 MG DAILY
     Route: 048
     Dates: start: 20191023, end: 20191030
  7. NEUPRO [Suspect]
     Active Substance: ROTIGOTINE
     Indication: PARKINSON^S DISEASE
     Dosage: 6 MG/24 HR
     Route: 062
  8. STALEVO [LEVOCETIRIZINE DIHYDROCHLORIDE] [Concomitant]
     Active Substance: LEVOCETIRIZINE DIHYDROCHLORIDE
     Indication: PARKINSONISM
     Route: 048
  9. TAMSULOSINE [TAMSULOSIN] [Concomitant]
     Active Substance: TAMSULOSIN
     Indication: PRODUCT USED FOR UNKNOWN INDICATION
     Dosage: LP 0.4MG
     Route: 048

REACTIONS (1)
  - Coma [Recovered/Resolved]

NARRATIVE: CASE EVENT DATE: 20191030
